FAERS Safety Report 13615036 (Version 1)
Quarter: 2017Q2

REPORT INFORMATION
  Report Type: Report from Study
  Country: US (occurrence: US)
  Receive Date: 20170606
  Receipt Date: 20170606
  Transmission Date: 20170830
  Serious: Yes (Life-Threatening)
  Sender: FDA-Public Use
  Company Number: US-BION-006362

PATIENT
  Age: 48 Year
  Sex: Female

DRUGS (7)
  1. ALPRAZOLAM. [Suspect]
     Active Substance: ALPRAZOLAM
  2. COCAINE [Suspect]
     Active Substance: COCAINE
  3. CARISOPRODOL. [Suspect]
     Active Substance: CARISOPRODOL
  4. METHOTREXATE. [Suspect]
     Active Substance: METHOTREXATE
  5. LOPERAMIDE UNKNOWN PRODUCT [Suspect]
     Active Substance: LOPERAMIDE
  6. TRAZODONE [Suspect]
     Active Substance: TRAZODONE HYDROCHLORIDE
  7. TRAMADOL. [Suspect]
     Active Substance: TRAMADOL

REACTIONS (5)
  - Coma [Unknown]
  - Mydriasis [Unknown]
  - Suicide attempt [Unknown]
  - Somnolence [Unknown]
  - Lethargy [Unknown]
